FAERS Safety Report 5032243-0 (Version None)
Quarter: 2006Q2

REPORT INFORMATION
  Report Type: 
  Country: None (occurrence: None)
  Receive Date: 20060619
  Receipt Date: 20060606
  Transmission Date: 20061013
  Serious: Yes (Life-Threatening, Hospitalization, Disabling, Other)
  Sender: FDA-Public Use
  Company Number: HQWYE287211MAY06

PATIENT
  Age: 78 Year
  Sex: Male
  Weight: 68.1 kg

DRUGS (3)
  1. PHENERGAN [Suspect]
     Indication: NAUSEA
     Dosage: 1 DOSAGE FORM 1X PER 1 TOT
     Dates: start: 20051112, end: 20051112
  2. ANTIHYPERTENSIVE AGENT (ANTIHYPERTENSIVE AGENT) [Concomitant]
  3. XANAX [Concomitant]

REACTIONS (12)
  - AMNESIA [None]
  - ANAPHYLACTIC SHOCK [None]
  - ANGIONEUROTIC OEDEMA [None]
  - APHASIA [None]
  - CONDITION AGGRAVATED [None]
  - HYPERTENSION [None]
  - LIP PAIN [None]
  - MOBILITY DECREASED [None]
  - ORAL CANDIDIASIS [None]
  - PAIN [None]
  - WALKING AID USER [None]
  - WHEELCHAIR USER [None]
